FAERS Safety Report 4287618-4 (Version None)
Quarter: 2004Q1

REPORT INFORMATION
  Report Type: 
  Country: None (occurrence: None)
  Receive Date: 20040205
  Receipt Date: 20040126
  Transmission Date: 20041129
  Serious: Yes (Hospitalization)
  Sender: FDA-Public Use
  Company Number: US_040199984

PATIENT
  Age: 8 Year
  Sex: Male
  Weight: 25 kg

DRUGS (2)
  1. STRATTERA [Suspect]
     Dosage: 25 MG/DAY
     Dates: start: 20031017
  2. ADDERALL 10 [Concomitant]

REACTIONS (7)
  - CHEST PAIN [None]
  - DEPRESSED LEVEL OF CONSCIOUSNESS [None]
  - DYSPNOEA [None]
  - FATIGUE [None]
  - HEADACHE [None]
  - MIOSIS [None]
  - SEDATION [None]
